FAERS Safety Report 6868616-0 (Version None)
Quarter: 2010Q3

REPORT INFORMATION
  Report Type: 
  Country: None (occurrence: None)
  Receive Date: 20100722
  Receipt Date: 20080805
  Transmission Date: 20110219
  Serious: Yes (Other)
  Sender: FDA-Public Use
  Company Number: US-PFIZER INC-2008046937

PATIENT
  Sex: Male
  Weight: 77 kg

DRUGS (8)
  1. CHANTIX [Suspect]
     Indication: SMOKING CESSATION THERAPY
     Route: 048
     Dates: start: 20080329, end: 20080528
  2. EFFEXOR XR [Concomitant]
     Indication: DEPRESSION
     Route: 048
  3. CHOLESTEROL- AND TRIGLYCERIDE REDUCERS [Concomitant]
     Indication: BLOOD CHOLESTEROL INCREASED
     Route: 048
  4. LORTAB [Concomitant]
     Indication: PAIN
     Route: 048
  5. LORTAB [Concomitant]
  6. ANTIBIOTICS [Concomitant]
     Route: 048
  7. LOVAZA [Concomitant]
  8. STATINS [Concomitant]

REACTIONS (8)
  - ANGER [None]
  - DEPRESSION [None]
  - DISORIENTATION [None]
  - FATIGUE [None]
  - HYPERSOMNIA [None]
  - IRRITABILITY [None]
  - LOSS OF CONSCIOUSNESS [None]
  - MENTAL IMPAIRMENT [None]
